FAERS Safety Report 13925345 (Version 2)
Quarter: 2017Q4

REPORT INFORMATION
  Report Type: Report from Study
  Country: US (occurrence: US)
  Receive Date: 20170831
  Receipt Date: 20171024
  Transmission Date: 20180320
  Serious: Yes (Hospitalization)
  Sender: FDA-Public Use
  Company Number: US-EMD SERONO-E2B_80079893

PATIENT
  Age: 17 Year
  Sex: Female

DRUGS (1)
  1. REBIF [Suspect]
     Active Substance: INTERFERON BETA-1A
     Indication: RELAPSING-REMITTING MULTIPLE SCLEROSIS
     Route: 058
     Dates: start: 20170223

REACTIONS (5)
  - Seizure [Unknown]
  - Abnormal behaviour [Not Recovered/Not Resolved]
  - Fatigue [Not Recovered/Not Resolved]
  - Road traffic accident [Unknown]
  - Thermal burn [Recovered/Resolved]

NARRATIVE: CASE EVENT DATE: 201708
